FAERS Safety Report 9337447 (Version 1)
Quarter: 2013Q2

REPORT INFORMATION
  Report Type: Spontaneous
  Country: FR (occurrence: FR)
  Receive Date: 20130607
  Receipt Date: 20130607
  Transmission Date: 20140414
  Serious: Yes (Hospitalization, Other)
  Sender: FDA-Public Use
  Company Number: FR-BRISTOL-MYERS SQUIBB COMPANY-18951137

PATIENT
  Age: 79 Year
  Sex: Male

DRUGS (13)
  1. EFFERALGAN EFFER TABS 1 G [Suspect]
     Indication: ANALGESIC THERAPY
     Route: 048
     Dates: end: 20120917
  2. SINEMET [Suspect]
     Indication: EXTRAPYRAMIDAL DISORDER
     Dosage: 1 DF: 250MG/25MG
     Route: 048
     Dates: start: 201206, end: 20120917
  3. OLMESARTAN MEDOXOMIL + HCTZ [Suspect]
     Indication: HYPERTENSION
     Route: 048
     Dates: end: 20120917
  4. TOPALGIC LP [Suspect]
     Indication: ANALGESIC THERAPY
     Route: 048
     Dates: end: 20120917
  5. STAGID [Suspect]
     Indication: TYPE 2 DIABETES MELLITUS
     Route: 048
     Dates: end: 20120917
  6. PERMIXON [Suspect]
     Indication: MICTURITION DISORDER
     Route: 048
     Dates: end: 20120917
  7. RILMENIDINE [Suspect]
     Indication: HYPERTENSION
     Route: 048
     Dates: end: 20120917
  8. NOVONORM [Concomitant]
     Dates: end: 20121004
  9. CLOPIDOGREL HYDROGEN SULFATE [Concomitant]
     Dates: end: 20120928
  10. ALLOPURINOL [Concomitant]
     Dates: end: 20120927
  11. ATENOLOL [Concomitant]
  12. IKOREL [Concomitant]
  13. MOVICOL [Concomitant]
     Dosage: 1 DF: 1 TAB, EVERY OTHER DAY

REACTIONS (8)
  - Renal failure acute [Unknown]
  - Confusional state [Recovered/Resolved]
  - Hallucination [Recovered/Resolved]
  - Vomiting [Recovered/Resolved]
  - Gait disturbance [Unknown]
  - Dysarthria [Unknown]
  - Diabetes mellitus [Unknown]
  - Cerebrovascular accident [Unknown]
